FAERS Safety Report 8133738-3 (Version None)
Quarter: 2012Q1

REPORT INFORMATION
  Report Type: 
  Country: None (occurrence: None)
  Receive Date: 20120213
  Receipt Date: 20120210
  Transmission Date: 20120608
  Serious: Yes (Life-Threatening, Hospitalization)
  Sender: FDA-Public Use
  Company Number: GB-B.I. PHARMACEUTICALS,INC./RIDGEFIELD-2012-UK-00172UK

PATIENT
  Age: 76 Year
  Sex: Male

DRUGS (3)
  1. WARFARIN SODIUM [Concomitant]
     Indication: MITRAL VALVE REPLACEMENT
  2. ACETAMINOPHEN AND CODEINE PHOSPHATE [Concomitant]
  3. PRADAXA [Suspect]
     Indication: MITRAL VALVE REPLACEMENT
     Dosage: 150 MG
     Route: 048
     Dates: start: 20120116, end: 20120125

REACTIONS (3)
  - MOUTH HAEMORRHAGE [None]
  - RENAL IMPAIRMENT [None]
  - INTERNATIONAL NORMALISED RATIO INCREASED [None]
